FAERS Safety Report 6420603-2 (Version None)
Quarter: 2009Q4

REPORT INFORMATION
  Report Type: 
  Country: None (occurrence: None)
  Receive Date: 20091027
  Receipt Date: 20091019
  Transmission Date: 20100525
  Serious: Yes (Hospitalization)
  Sender: FDA-Public Use
  Company Number: SPV1-2009-02042

PATIENT
  Age: 57 Year
  Sex: 0

DRUGS (1)
  1. FOSRENOL [Suspect]

REACTIONS (1)
  - HOSPITALISATION [None]
